FAERS Safety Report 9263081 (Version 3)
Quarter: 2014Q3

REPORT INFORMATION
  Report Type: Spontaneous
  Country: US (occurrence: US)
  Receive Date: 20130430
  Receipt Date: 20140917
  Transmission Date: 20150326
  Serious: Yes (Hospitalization, Other)
  Sender: FDA-Public Use
  Company Number: US-ROCHE-661424

PATIENT
  Age: 18 Year
  Sex: Female
  Weight: 68 kg

DRUGS (3)
  1. ACCUTANE [Suspect]
     Active Substance: ISOTRETINOIN
     Indication: ACNE
     Route: 048
     Dates: start: 20011230, end: 20020519
  2. ORTHO TRI CYCLEN [Concomitant]
     Active Substance: ETHINYL ESTRADIOL\NORGESTIMATE
     Indication: CONTRACEPTION
  3. ALLEGRA [Concomitant]
     Active Substance: FEXOFENADINE HYDROCHLORIDE
     Indication: HYPERSENSITIVITY

REACTIONS (16)
  - Colitis ulcerative [Unknown]
  - Pancreatitis [Unknown]
  - Oral herpes [Unknown]
  - Epistaxis [Unknown]
  - Rash [Unknown]
  - Depression [Unknown]
  - Mucosal dryness [Unknown]
  - Arthritis [Unknown]
  - Dry skin [Unknown]
  - Headache [Recovered/Resolved]
  - Rectal polyp [Unknown]
  - Lip dry [Unknown]
  - Inflammatory bowel disease [Unknown]
  - Myalgia [Unknown]
  - Dry eye [Unknown]
  - Temporomandibular joint syndrome [Unknown]

NARRATIVE: CASE EVENT DATE: 20020123
